FAERS Safety Report 5946688-5 (Version None)
Quarter: 2008Q4

REPORT INFORMATION
  Report Type: 
  Country: None (occurrence: None)
  Receive Date: 20081110
  Receipt Date: 20081008
  Transmission Date: 20090506
  Serious: No
  Sender: FDA-Public Use
  Company Number: A0744435A

PATIENT
  Age: 7 Year
  Sex: Female
  Weight: 30.9 kg

DRUGS (1)
  1. ALTABAX [Suspect]
     Indication: GENITAL RASH
     Route: 061
     Dates: start: 20080415, end: 20080415

REACTIONS (3)
  - BURNING SENSATION [None]
  - DRUG INEFFECTIVE [None]
  - TREMOR [None]
